FAERS Safety Report 16689364 (Version 1)
Quarter: 2019Q3

REPORT INFORMATION
  Report Type: Other
  Country: US (occurrence: US)
  Receive Date: 20190809
  Receipt Date: 20190809
  Transmission Date: 20191004
  Serious: Yes (Hospitalization)
  Sender: FDA-Public Use
  Company Number: US-INTERCEPT-PM2019001227

PATIENT
  Age: 59 Year
  Sex: Female

DRUGS (1)
  1. OCALIVA [Suspect]
     Active Substance: OBETICHOLIC ACID
     Indication: PRIMARY BILIARY CHOLANGITIS
     Dosage: 5 MG, 3X/WK EVERY MONDAY, WEDNESDAY, FRIDAY
     Route: 048
     Dates: start: 20190710

REACTIONS (4)
  - Somnolence [Unknown]
  - Fatigue [Unknown]
  - Pruritus [Unknown]
  - Seizure [Unknown]

NARRATIVE: CASE EVENT DATE: 2019
